FAERS Safety Report 6896365-1 (Version None)
Quarter: 2010Q3

REPORT INFORMATION
  Report Type: 
  Country: None (occurrence: None)
  Receive Date: 20100802
  Receipt Date: 20090122
  Transmission Date: 20110219
  Serious: No
  Sender: FDA-Public Use
  Company Number: US-PFIZER INC-2009161685

PATIENT

DRUGS (1)
  1. NORVASC [Suspect]

REACTIONS (1)
  - ADVERSE DRUG REACTION [None]
